FAERS Safety Report 7219734-9 (Version None)
Quarter: 2011Q1

REPORT INFORMATION
  Report Type: 
  Country: None (occurrence: None)
  Receive Date: 20110111
  Receipt Date: 20101129
  Transmission Date: 20110831
  Serious: Yes (Death, Hospitalization, Other)
  Sender: FDA-Public Use
  Company Number: US-BAXTER-2009BH018701

PATIENT
  Age: 53 Year
  Sex: Female

DRUGS (22)
  1. HEPARIN SODIUM INJECTION [Suspect]
     Route: 042
     Dates: start: 20071001, end: 20071001
  2. HEPARIN SODIUM INJECTION [Suspect]
     Route: 042
     Dates: start: 20071001, end: 20071001
  3. ASPIRIN [Concomitant]
     Indication: PRODUCT USED FOR UNKNOWN INDICATION
  4. HEPARIN SODIUM INJECTION [Suspect]
     Indication: ANGIOPLASTY
     Route: 042
     Dates: start: 20070901, end: 20070927
  5. HEPARIN SODIUM INJECTION [Suspect]
     Route: 042
     Dates: start: 20071101, end: 20071101
  6. HEPARIN SODIUM INJECTION [Suspect]
     Route: 042
     Dates: start: 20071101, end: 20071101
  7. KEFLEX [Concomitant]
     Indication: PRODUCT USED FOR UNKNOWN INDICATION
  8. PLAVIX [Concomitant]
     Indication: PRODUCT USED FOR UNKNOWN INDICATION
  9. HEPARIN SODIUM INJECTION [Suspect]
     Indication: PERIPHERAL VASCULAR DISORDER
     Route: 042
     Dates: start: 20070901, end: 20070927
  10. HEPARIN SODIUM INJECTION [Suspect]
     Route: 042
     Dates: start: 20071001, end: 20071001
  11. LISINOPRIL [Concomitant]
     Indication: PRODUCT USED FOR UNKNOWN INDICATION
  12. PREGABALIN [Concomitant]
     Indication: PRODUCT USED FOR UNKNOWN INDICATION
  13. INSULIN [Concomitant]
     Indication: PRODUCT USED FOR UNKNOWN INDICATION
  14. HEPARIN SODIUM INJECTION [Suspect]
     Route: 042
     Dates: start: 20071001, end: 20071001
  15. HEPARIN SODIUM INJECTION [Suspect]
     Route: 042
     Dates: start: 20071101, end: 20071101
  16. NORCO [Concomitant]
     Indication: PRODUCT USED FOR UNKNOWN INDICATION
  17. LOPRESSOR [Concomitant]
     Indication: PRODUCT USED FOR UNKNOWN INDICATION
  18. PRAVASTATIN [Concomitant]
     Indication: PRODUCT USED FOR UNKNOWN INDICATION
  19. HEPARIN SODIUM INJECTION [Suspect]
     Indication: THROMBECTOMY
     Route: 042
     Dates: start: 20070901, end: 20070927
  20. HEPARIN SODIUM INJECTION [Suspect]
     Indication: COAGULOPATHY
     Route: 042
     Dates: start: 20070901, end: 20070927
  21. HEPARIN SODIUM INJECTION [Suspect]
     Route: 042
     Dates: start: 20071101, end: 20071101
  22. NITROGLYCERIN ^A.L.^ [Concomitant]
     Indication: PRODUCT USED FOR UNKNOWN INDICATION

REACTIONS (22)
  - CANDIDURIA [None]
  - PULSELESS ELECTRICAL ACTIVITY [None]
  - PERIPHERAL VASCULAR DISORDER [None]
  - HEPARIN-INDUCED THROMBOCYTOPENIA [None]
  - CALCIUM IONISED INCREASED [None]
  - GENERAL PHYSICAL HEALTH DETERIORATION [None]
  - WHITE BLOOD CELL COUNT INCREASED [None]
  - ABDOMINAL COMPARTMENT SYNDROME [None]
  - CORONARY ARTERY DISEASE [None]
  - GRAFT THROMBOSIS [None]
  - ORGAN FAILURE [None]
  - RECTAL HAEMORRHAGE [None]
  - PLEURAL EFFUSION [None]
  - RENAL FAILURE [None]
  - PULSE ABSENT [None]
  - HAEMORRHAGE [None]
  - NECROSIS [None]
  - BRADYCARDIA [None]
  - HYPOTENSION [None]
  - CARDIO-RESPIRATORY ARREST [None]
  - ACINETOBACTER TEST POSITIVE [None]
  - INTESTINAL ISCHAEMIA [None]
